FAERS Safety Report 7340641-5 (Version None)
Quarter: 2011Q1

REPORT INFORMATION
  Report Type: 
  Country: None (occurrence: None)
  Receive Date: 20110228
  Receipt Date: 20110211
  Transmission Date: 20110831
  Serious: No
  Sender: FDA-Public Use
  Company Number: 027440

PATIENT
  Sex: Male
  Weight: 88.8 kg

DRUGS (4)
  1. OMEPRAZOLE [Concomitant]
  2. MULTI-VITAMINS [Concomitant]
  3. LACOSAMIDE [Suspect]
     Indication: EPILEPSY
     Dosage: (200 MG BID ORAL)
     Route: 048
     Dates: start: 20100922, end: 20110209
  4. TYLENOL (CAPLET) [Concomitant]

REACTIONS (1)
  - BRADYCARDIA [None]
